FAERS Safety Report 8107105-2 (Version None)
Quarter: 2011Q4

REPORT INFORMATION
  Report Type: 
  Country: None (occurrence: None)
  Receive Date: 20111227
  Receipt Date: 20110831
  Transmission Date: 20120403
  Serious: No
  Sender: FDA-Public Use
  Company Number: PHEH2011US02999

PATIENT
  Age: 38 Year
  Sex: Female

DRUGS (10)
  1. PROVIGIL [Concomitant]
  2. GILENYA [Suspect]
     Dosage: 0.5 MG, QD, ORAL
     Route: 048
  3. CYMBALTA [Concomitant]
  4. RITALIN [Concomitant]
  5. FLEXERIL [Concomitant]
  6. NEURONTIN [Concomitant]
  7. BACLOFEN [Concomitant]
  8. FOSAMAX [Concomitant]
  9. WELLBUTRIN [Concomitant]
  10. VICODIN [Concomitant]

REACTIONS (2)
  - DIZZINESS [None]
  - SINUS DISORDER [None]
